FAERS Safety Report 6196247-7 (Version None)
Quarter: 2009Q2

REPORT INFORMATION
  Report Type: 
  Country: None (occurrence: None)
  Receive Date: 20090520
  Receipt Date: 20090518
  Transmission Date: 20091009
  Serious: Yes (Death, Hospitalization)
  Sender: FDA-Public Use
  Company Number: PHHY2009CA17760

PATIENT

DRUGS (6)
  1. DIOVAN T30230++HY [Suspect]
     Indication: HYPERTENSION
  2. DIOVAN T30230++HY [Suspect]
     Indication: CARDIAC FAILURE
  3. LASIX [Concomitant]
     Route: 065
  4. LEVOPHED [Concomitant]
     Route: 065
  5. ANTIBIOTICS [Concomitant]
     Route: 065
  6. STEROIDS NOS [Concomitant]
     Route: 065

REACTIONS (3)
  - CHRONIC OBSTRUCTIVE PULMONARY DISEASE [None]
  - LUNG INFECTION [None]
  - SEPTIC SHOCK [None]
